FAERS Safety Report 11642997 (Version 2)
Quarter: 2015Q4

REPORT INFORMATION
  Report Type: Spontaneous
  Country: AU (occurrence: AU)
  Receive Date: 20151020
  Receipt Date: 20151130
  Transmission Date: 20160304
  Serious: Yes (Other)
  Sender: FDA-Public Use
  Company Number: AU-ROCHE-1647231

PATIENT
  Age: 45 Year
  Sex: Male

DRUGS (4)
  1. MABTHERA [Suspect]
     Active Substance: RITUXIMAB
     Dosage: DOSE COMPLETED OVER 8 HOURS
     Route: 042
     Dates: start: 20150820, end: 20150820
  2. MABTHERA [Suspect]
     Active Substance: RITUXIMAB
     Indication: B-CELL SMALL LYMPHOCYTIC LYMPHOMA
     Dosage: APPROX.3 YEARS AGO,
     Route: 042
     Dates: start: 2011
  3. ONDANSETRON [Concomitant]
     Active Substance: ONDANSETRON
     Indication: NAUSEA
     Route: 048
     Dates: start: 20150820
  4. BENDAMUSTINE [Concomitant]
     Active Substance: BENDAMUSTINE
     Indication: B-CELL SMALL LYMPHOCYTIC LYMPHOMA
     Dosage: DAY 1 DAY2, LATER EVERY 28 DAYS
     Route: 042

REACTIONS (9)
  - Infusion related reaction [Unknown]
  - Arthralgia [Unknown]
  - Influenza like illness [Unknown]
  - Rash maculo-papular [Unknown]
  - Pyrexia [Unknown]
  - Angioedema [Unknown]
  - Arthritis [Unknown]
  - Serum sickness [Recovered/Resolved]
  - Urticaria [Unknown]

NARRATIVE: CASE EVENT DATE: 20150820
